FAERS Safety Report 6254840-7 (Version None)
Quarter: 2009Q3

REPORT INFORMATION
  Report Type: 
  Country: None (occurrence: None)
  Receive Date: 20090702
  Receipt Date: 20090629
  Transmission Date: 20100115
  Serious: Yes (Life-Threatening, Hospitalization)
  Sender: FDA-Public Use
  Company Number: PHEH2009US06275

PATIENT
  Age: 34 Year
  Sex: Male

DRUGS (2)
  1. RITALIN LA [Suspect]
     Indication: ATTENTION DEFICIT/HYPERACTIVITY DISORDER
     Dosage: 30 MG, QD
     Dates: start: 20050622, end: 20090309
  2. EFFEXOR XR [Concomitant]
     Dosage: 75 MG, QD

REACTIONS (4)
  - CORONARY ARTERIAL STENT INSERTION [None]
  - CORONARY ARTERY DISEASE [None]
  - HYPERTENSION [None]
  - TACHYCARDIA [None]
